FAERS Safety Report 20785297 (Version 1)
Quarter: 2022Q2

REPORT INFORMATION
  Report Type: Spontaneous
  Country: US (occurrence: None)
  Receive Date: 20220504
  Receipt Date: 20220504
  Transmission Date: 20220721
  Serious: No
  Sender: FDA-Public Use
  Company Number: None

PATIENT
  Sex: Female

DRUGS (1)
  1. NEXPLANON [Suspect]
     Active Substance: ETONOGESTREL
     Indication: Contraception
     Dosage: FREQUENCY : ONCE;?
     Route: 058
     Dates: start: 202012, end: 20210121

REACTIONS (6)
  - Maternal exposure during delivery [None]
  - Foetal exposure during pregnancy [None]
  - Abortion spontaneous [None]
  - Heavy menstrual bleeding [None]
  - Dysmenorrhoea [None]
  - Unintended pregnancy [None]
